FAERS Safety Report 9024975 (Version 2)
Quarter: 2013Q1

REPORT INFORMATION
  Report Type: Spontaneous
  Country: JP (occurrence: None)
  Receive Date: 20130104
  Receipt Date: 20130125
  Transmission Date: 20140127
  Serious: Yes (Other)
  Sender: FDA-Public Use
  Company Number: SPI201200417

PATIENT
  Age: 92 Year
  Sex: Female

DRUGS (6)
  1. AMITIZA (LUBIPROSTONE) CAPSULE, 24MCG [Suspect]
     Indication: CONSTIPATION
     Route: 048
     Dates: start: 20121205, end: 20121210
  2. CANDESARTAN CILEXETIL W/HYDROCHLOROTHIAZIDE (CANDESARTAN CILEXETIL W/HYDROCHLOROTHIAZIDE) [Concomitant]
  3. AMLODIN (AMLODIPINE BESILATE) [Concomitant]
  4. ACETANOL (ACEBUTOLOL HYDROCHLORIDE) [Concomitant]
  5. ASPIRIN (ASPIRIN) [Concomitant]
  6. TAKEPRON (LANSOPRAZOLE) [Concomitant]

REACTIONS (2)
  - Face oedema [None]
  - Drug ineffective [None]
